FAERS Safety Report 8457776-6 (Version None)
Quarter: 2012Q2

REPORT INFORMATION
  Report Type: 
  Country: None (occurrence: None)
  Receive Date: 20120618
  Receipt Date: 20120618
  Transmission Date: 20120825
  Serious: Yes (Hospitalization)
  Sender: FDA-Public Use
  Company Number: None

PATIENT
  Sex: Female
  Weight: 61.5 kg

DRUGS (2)
  1. CARBOPLATIN [Suspect]
     Dosage: 624 MG
  2. TAXOL [Suspect]
     Dosage: 292 MG

REACTIONS (1)
  - NEUTROPENIA [None]
